FAERS Safety Report 21856974 (Version 3)
Quarter: 2023Q2

REPORT INFORMATION
  Report Type: Spontaneous
  Country: US (occurrence: US)
  Receive Date: 20230113
  Receipt Date: 20230419
  Transmission Date: 20230722
  Serious: Yes (Other)
  Sender: FDA-Public Use
  Company Number: US-BRISTOL-MYERS SQUIBB COMPANY-2023-005245

PATIENT
  Age: 72 Year
  Sex: Female

DRUGS (3)
  1. POMALYST [Suspect]
     Active Substance: POMALIDOMIDE
     Indication: Plasma cell myeloma
     Dosage: TAKE 1 WHOLE  CAPSULE BY MOUTH WITH WATER W/ OR W/O FOOD AT THE SAME TIME  EVERY DAY ON DAYS 1-21 OF
     Route: 048
     Dates: start: 20221214
  2. UNSPECIFIED INGREDIENT [Concomitant]
     Active Substance: UNSPECIFIED INGREDIENT
     Indication: Product used for unknown indication
  3. DEXAMETHASONE [Concomitant]
     Active Substance: DEXAMETHASONE
     Indication: Product used for unknown indication

REACTIONS (5)
  - Vomiting [Unknown]
  - Blindness transient [Recovered/Resolved]
  - Product dose omission issue [Unknown]
  - Illness [Recovered/Resolved]
  - White blood cell count decreased [Unknown]
